FAERS Safety Report 7215240-6 (Version None)
Quarter: 2011Q1

REPORT INFORMATION
  Report Type: 
  Country: None (occurrence: None)
  Receive Date: 20110107
  Receipt Date: 20101228
  Transmission Date: 20110831
  Serious: Yes (Other)
  Sender: FDA-Public Use
  Company Number: PHHY2010US88920

PATIENT
  Sex: Female

DRUGS (7)
  1. ATENOLOL [Concomitant]
     Dosage: 50 MG, BID
  2. RANITIDINE [Concomitant]
     Dosage: 150 MG, BID
  3. BUPROPION [Concomitant]
     Dosage: 150 MG, UNK
  4. FEMARA [Suspect]
     Dosage: 2.5 MG, QD
     Route: 048
  5. PLAVIX [Concomitant]
     Dosage: 75 MG
  6. ISOSORBIDE DINITRATE [Concomitant]
     Dosage: 60 MG
  7. GABAPENTIN [Concomitant]
     Dosage: 100 MG

REACTIONS (1)
  - PNEUMONIA [None]
